FAERS Safety Report 6641059-0 (Version None)
Quarter: 2010Q1

REPORT INFORMATION
  Report Type: 
  Country: None (occurrence: None)
  Receive Date: 20100318
  Receipt Date: 20090429
  Transmission Date: 20100710
  Serious: No
  Sender: FDA-Public Use
  Company Number: US-ASTRAZENECA-2009UW10645

PATIENT
  Sex: Male

DRUGS (2)
  1. LISINOPRIL [Suspect]
     Route: 048
  2. UNKNOWN [Interacting]

REACTIONS (3)
  - COUGH [None]
  - DRUG INTERACTION [None]
  - NASOPHARYNGITIS [None]
